FAERS Safety Report 18378903 (Version 1)
Quarter: 2020Q4

REPORT INFORMATION
  Report Type: Other
  Country: RU (occurrence: RU)
  Receive Date: 20201013
  Receipt Date: 20201013
  Transmission Date: 20210114
  Serious: Yes (Other)
  Sender: FDA-Public Use
  Company Number: RU-ROCHE-2691293

PATIENT

DRUGS (2)
  1. MYCOPHENOLATE MOFETIL. [Suspect]
     Active Substance: MYCOPHENOLATE MOFETIL
     Indication: IMMUNOSUPPRESSION
     Route: 065
  2. TACROLIMUS. [Suspect]
     Active Substance: TACROLIMUS
     Indication: IMMUNOSUPPRESSION
     Dosage: 0.2-0.3 MG/KG/D OR 1-2 MG/D
     Route: 065

REACTIONS (5)
  - Viral infection [Unknown]
  - Thrombosis [Unknown]
  - Haemorrhage [Unknown]
  - Biliary fistula [Unknown]
  - Bacterial infection [Unknown]
